FAERS Safety Report 10078518 (Version 3)
Quarter: 2014Q3

REPORT INFORMATION
  Report Type: Spontaneous
  Country: PT (occurrence: PT)
  Receive Date: 20140415
  Receipt Date: 20140924
  Transmission Date: 20150326
  Serious: Yes (Other)
  Sender: FDA-Public Use
  Company Number: PT-JNJFOC-20140316118

PATIENT
  Sex: Male

DRUGS (12)
  1. REMICADE [Suspect]
     Active Substance: INFLIXIMAB
     Indication: GRAFT VERSUS HOST DISEASE
     Dosage: 4 INFLIXIMAB ADMINISTRATIONS
     Route: 042
  2. REMICADE [Suspect]
     Active Substance: INFLIXIMAB
     Indication: INTERLEUKIN LEVEL DECREASED
     Dosage: THIRD INFLIXIMAB INFUSION
     Route: 042
     Dates: start: 2014
  3. CLEMASTINE [Concomitant]
     Active Substance: CLEMASTINE
     Indication: PREMEDICATION
     Route: 065
  4. REMICADE [Suspect]
     Active Substance: INFLIXIMAB
     Indication: GRAFT VERSUS HOST DISEASE
     Dosage: TWO INFLIXIMAB ADMINISTRATIONS FOR GRAFT VERSUS HOST INDICATION
     Route: 042
     Dates: start: 2014
  5. PREDNISOLONE. [Concomitant]
     Active Substance: PREDNISOLONE
     Indication: PREMEDICATION
     Route: 065
  6. TACROLIMUS. [Concomitant]
     Active Substance: TACROLIMUS
     Route: 065
  7. REMICADE [Suspect]
     Active Substance: INFLIXIMAB
     Indication: GRAFT VERSUS HOST DISEASE
     Dosage: FOURTH INFUSION
     Route: 042
     Dates: start: 2014
  8. REMICADE [Suspect]
     Active Substance: INFLIXIMAB
     Indication: GRAFT VERSUS HOST DISEASE
     Dosage: THIRD INFLIXIMAB INFUSION
     Route: 042
     Dates: start: 2014
  9. REMICADE [Suspect]
     Active Substance: INFLIXIMAB
     Indication: INTERLEUKIN LEVEL DECREASED
     Dosage: TWO INFLIXIMAB ADMINISTRATIONS FOR GRAFT VERSUS HOST INDICATION
     Route: 042
     Dates: start: 2014
  10. REMICADE [Suspect]
     Active Substance: INFLIXIMAB
     Indication: INTERLEUKIN LEVEL DECREASED
     Dosage: 4 INFLIXIMAB ADMINISTRATIONS
     Route: 042
  11. PREDNISONE. [Concomitant]
     Active Substance: PREDNISONE
     Indication: PREMEDICATION
     Route: 065
  12. REMICADE [Suspect]
     Active Substance: INFLIXIMAB
     Indication: INTERLEUKIN LEVEL DECREASED
     Dosage: FOURTH INFUSION
     Route: 042
     Dates: start: 2014

REACTIONS (4)
  - Blood disorder [Unknown]
  - Spontaneous haemorrhage [Not Recovered/Not Resolved]
  - Off label use [Unknown]
  - Thrombocytopenia [Not Recovered/Not Resolved]

NARRATIVE: CASE EVENT DATE: 2014
